FAERS Safety Report 9198489 (Version 1)
Quarter: 2013Q1

REPORT INFORMATION
  Report Type: Spontaneous
  Country: US (occurrence: None)
  Receive Date: 20120709
  Receipt Date: 20120709
  Transmission Date: 20140127
  Serious: Yes (Other)
  Sender: FDA-Public Use
  Company Number: PHHY2011US59872

PATIENT
  Sex: Female
  Weight: 78 kg

DRUGS (4)
  1. GLEEVEC (IMATINIB) UNKNOWN [Suspect]
     Indication: CHRONIC MYELOID LEUKAEMIA
     Route: 048
     Dates: start: 200906
  2. NEXIUM (ESOMEPRAZOLE MAGNESIUM) [Concomitant]
  3. CLARITHROMYCIN (CLARITHROMYCIN) [Concomitant]
  4. ZYRTEC (CETIRIZINE HYDROCHLORIDE) [Concomitant]

REACTIONS (2)
  - Swelling face [None]
  - Yellow skin [None]
